FAERS Safety Report 5015449-6 (Version None)
Quarter: 2006Q2

REPORT INFORMATION
  Report Type: 
  Country: None (occurrence: None)
  Receive Date: 20060601
  Receipt Date: 20060524
  Transmission Date: 20061013
  Serious: Yes (Other)
  Sender: FDA-Public Use
  Company Number: US-BRISTOL-MYERS SQUIBB COMPANY-13393764

PATIENT

DRUGS (1)
  1. TEQUIN [Suspect]
     Indication: SINUSITIS
     Dates: start: 20020101, end: 20020104

REACTIONS (10)
  - ASTHENIA [None]
  - DIZZINESS [None]
  - DYSPHAGIA [None]
  - DYSPNOEA [None]
  - HYPOAESTHESIA [None]
  - MALAISE [None]
  - MEMORY IMPAIRMENT [None]
  - OEDEMA MOUTH [None]
  - PAIN IN EXTREMITY [None]
  - PARAESTHESIA [None]
